FAERS Safety Report 13462020 (Version 1)
Quarter: 2017Q2

REPORT INFORMATION
  Report Type: Spontaneous
  Country: US (occurrence: US)
  Receive Date: 20170420
  Receipt Date: 20170420
  Transmission Date: 20170830
  Serious: Yes (Hospitalization)
  Sender: FDA-Public Use
  Company Number: None

PATIENT
  Age: 46 Year
  Sex: Female

DRUGS (6)
  1. IMATINIB 400MG [Suspect]
     Active Substance: IMATINIB
     Indication: MYELOID LEUKAEMIA
     Route: 048
     Dates: start: 20160527
  2. VITAMIN D3 [Concomitant]
     Active Substance: CHOLECALCIFEROL
  3. PROBIOTIC [Concomitant]
     Active Substance: PROBIOTICS NOS
  4. CALCIUM [Concomitant]
     Active Substance: CALCIUM
  5. POTASSIUM [Concomitant]
     Active Substance: POTASSIUM
  6. PRILOSEC [Concomitant]
     Active Substance: OMEPRAZOLE MAGNESIUM

REACTIONS (1)
  - Hospitalisation [None]
